FAERS Safety Report 25387138 (Version 1)
Quarter: 2025Q2

REPORT INFORMATION
  Report Type: Spontaneous
  Country: US (occurrence: US)
  Receive Date: 20250602
  Receipt Date: 20250602
  Transmission Date: 20250717
  Serious: Yes (Hospitalization, Other)
  Sender: ELI LILLY AND COMPANY
  Company Number: US-ELI_LILLY_AND_COMPANY-US202505018484

PATIENT
  Age: 67 Year
  Sex: Male

DRUGS (9)
  1. ZEPBOUND [Interacting]
     Active Substance: TIRZEPATIDE
     Indication: Weight control
     Route: 058
  2. ZEPBOUND [Interacting]
     Active Substance: TIRZEPATIDE
     Indication: Weight control
     Route: 058
  3. ZEPBOUND [Interacting]
     Active Substance: TIRZEPATIDE
     Indication: Weight control
     Route: 058
  4. ZEPBOUND [Interacting]
     Active Substance: TIRZEPATIDE
     Indication: Weight control
     Route: 058
  5. ZEPBOUND [Interacting]
     Active Substance: TIRZEPATIDE
     Route: 058
  6. ZEPBOUND [Interacting]
     Active Substance: TIRZEPATIDE
     Route: 058
  7. ZEPBOUND [Interacting]
     Active Substance: TIRZEPATIDE
     Route: 058
  8. ZEPBOUND [Interacting]
     Active Substance: TIRZEPATIDE
     Route: 058
  9. TYLENOL [Concomitant]
     Active Substance: ACETAMINOPHEN
     Indication: Arthritis

REACTIONS (3)
  - Gastrointestinal haemorrhage [Unknown]
  - Impaired gastric emptying [Unknown]
  - Drug interaction [Unknown]
